FAERS Safety Report 6325434-X (Version None)
Quarter: 2009Q3

REPORT INFORMATION
  Report Type: 
  Country: None (occurrence: None)
  Receive Date: 20090824
  Receipt Date: 20090713
  Transmission Date: 20100115
  Serious: No
  Sender: FDA-Public Use
  Company Number: US-ABBOTT-09P-163-0584787-00

PATIENT
  Sex: Male
  Weight: 92.162 kg

DRUGS (12)
  1. NIASPAN [Suspect]
     Indication: BLOOD TRIGLYCERIDES
     Dates: start: 20080101
  2. NIASPAN [Suspect]
     Indication: HIGH DENSITY LIPOPROTEIN ABNORMAL
  3. NIASPAN [Suspect]
     Indication: LOW DENSITY LIPOPROTEIN INCREASED
  4. NORVASC [Concomitant]
     Indication: DRUG USE FOR UNKNOWN INDICATION
     Route: 048
  5. ASPIRIN [Concomitant]
     Indication: DRUG USE FOR UNKNOWN INDICATION
     Route: 048
  6. PLAVIX [Concomitant]
     Indication: DRUG USE FOR UNKNOWN INDICATION
     Route: 048
  7. PEPCID [Concomitant]
     Indication: DRUG USE FOR UNKNOWN INDICATION
     Route: 048
  8. MULTI-VITAMINS [Concomitant]
     Indication: DRUG USE FOR UNKNOWN INDICATION
     Route: 048
  9. POTASSIUM CHLORIDE [Concomitant]
     Indication: DRUG USE FOR UNKNOWN INDICATION
     Route: 048
  10. VASOTEC [Concomitant]
     Indication: DRUG USE FOR UNKNOWN INDICATION
     Route: 048
  11. CAPTOPRIL [Concomitant]
     Indication: DRUG USE FOR UNKNOWN INDICATION
     Route: 048
  12. CLONAZEPAM [Concomitant]
     Indication: DRUG USE FOR UNKNOWN INDICATION
     Route: 048

REACTIONS (4)
  - DRUG INEFFECTIVE [None]
  - FEELING HOT [None]
  - FLUSHING [None]
  - PRURITUS [None]
